FAERS Safety Report 22098862 (Version 2)
Quarter: 2023Q1

REPORT INFORMATION
  Report Type: Spontaneous
  Country: US (occurrence: US)
  Receive Date: 20230315
  Receipt Date: 20230316
  Transmission Date: 20230418
  Serious: Yes (Hospitalization)
  Sender: FDA-Public Use
  Company Number: US-PFIZER INC-PV202300037441

PATIENT
  Age: 81 Year
  Sex: Male
  Weight: 72.12 kg

DRUGS (1)
  1. VYNDAMAX [Suspect]
     Active Substance: TAFAMIDIS
     Indication: Cardiac disorder
     Dosage: 61 MG, 1X/DAY

REACTIONS (2)
  - Spinal operation [Unknown]
  - Cardiac clearance [Unknown]

NARRATIVE: CASE EVENT DATE: 20230201
